FAERS Safety Report 12390303 (Version 3)
Quarter: 2016Q3

REPORT INFORMATION
  Report Type: Spontaneous
  Country: US (occurrence: US)
  Receive Date: 20160520
  Receipt Date: 20160729
  Transmission Date: 20161109
  Serious: Yes (Other)
  Sender: FDA-Public Use
  Company Number: US-PFIZER INC-2016268357

PATIENT
  Age: 8 Year
  Sex: Male
  Weight: 32 kg

DRUGS (1)
  1. QUILLIVANT XR [Suspect]
     Active Substance: METHYLPHENIDATE HYDROCHLORIDE
     Indication: ATTENTION DEFICIT/HYPERACTIVITY DISORDER
     Dosage: 8ML LIQUID BY MOUTH EVERY MORNING
     Route: 048
     Dates: start: 2015

REACTIONS (4)
  - Drug dispensing error [Unknown]
  - Mydriasis [Unknown]
  - Thinking abnormal [Recovering/Resolving]
  - Screaming [Recovered/Resolved]

NARRATIVE: CASE EVENT DATE: 20160518
